FAERS Safety Report 4458521-1 (Version None)
Quarter: 2004Q3

REPORT INFORMATION
  Report Type: 
  Country: None (occurrence: None)
  Receive Date: 20040922
  Receipt Date: 20030917
  Transmission Date: 20050211
  Serious: Yes (Hospitalization)
  Sender: FDA-Public Use
  Company Number: US-SHR-03-009796

PATIENT
  Age: 55 Year
  Sex: Female

DRUGS (9)
  1. BETASERON [Suspect]
     Indication: MULTIPLE SCLEROSIS
     Dosage: 8 MIU, EVERY 2D, SUBCUTANEOUS
     Route: 058
     Dates: start: 19991101
  2. EFFEXOR [Concomitant]
  3. RANITIDINE [Concomitant]
  4. NEURONTIN [Concomitant]
  5. DESLORATADINE (CLARINEX) (DESLORATADINE) [Concomitant]
  6. LOMOTIL [Concomitant]
  7. ESKALITH [Concomitant]
  8. LOPRESSOR [Concomitant]
  9. CELEBREX [Concomitant]

REACTIONS (2)
  - INJECTION SITE REACTION [None]
  - MULTIPLE SCLEROSIS [None]
